FAERS Safety Report 7646561-0 (Version None)
Quarter: 2011Q3

REPORT INFORMATION
  Report Type: 
  Country: None (occurrence: None)
  Receive Date: 20110729
  Receipt Date: 20110729
  Transmission Date: 20111222
  Serious: Yes (Other)
  Sender: FDA-Public Use
  Company Number: None

PATIENT
  Sex: Male

DRUGS (1)
  1. KEPPRA [Suspect]
     Dosage: 3ML BID PO
     Route: 048
     Dates: start: 20080103

REACTIONS (2)
  - PRODUCT QUALITY ISSUE [None]
  - CONVULSION [None]
